FAERS Safety Report 9106308 (Version 2)
Quarter: 2013Q2

REPORT INFORMATION
  Report Type: Other
  Country: GB (occurrence: GB)
  Receive Date: 20130221
  Receipt Date: 20130621
  Transmission Date: 20140414
  Serious: Yes (Death)
  Sender: FDA-Public Use
  Company Number: GB-WATSON-2013-02486

PATIENT
  Age: 81 Year
  Sex: Male

DRUGS (13)
  1. AMLODIPINE (UNKNOWN) [Suspect]
     Indication: HYPERTENSION
     Dosage: 5 MG, DAILY DOSAGE FORM: UNSPECIFIED
     Route: 065
  2. EPREX [Suspect]
     Indication: ANAEMIA
     Dosage: 4000 IU, 1/WEEK
     Route: 042
  3. EPREX [Suspect]
     Dosage: 4000 IU, 2/WEEK
     Route: 042
  4. PARACETAMOL [Concomitant]
     Indication: PRODUCT USED FOR UNKNOWN INDICATION
     Dosage: 1 G DAILY. DOSAGE FORM: UNSPECIFIED
     Route: 065
  5. CEFALEXIN [Concomitant]
     Indication: PRODUCT USED FOR UNKNOWN INDICATION
     Dosage: 250 MG, DAILY. DOSAGE FORM: UNSPECIFIED
     Route: 065
  6. LANSOPRAZOLE [Concomitant]
     Indication: PRODUCT USED FOR UNKNOWN INDICATION
     Dosage: 30 MG, DAILY, DOSAGE FORM: UNSPECIFIED
     Route: 065
  7. ALLOPURINOL [Concomitant]
     Indication: PRODUCT USED FOR UNKNOWN INDICATION
     Dosage: 100 MG, DAILY. DOSAGE FORM: UNSPECIFIED
     Route: 065
  8. ASPIRIN [Concomitant]
     Indication: PRODUCT USED FOR UNKNOWN INDICATION
     Dosage: 75 MG, DAILY. DOSAGE FORM: UNSPECIFIED
     Route: 065
  9. FENTANYL [Concomitant]
     Indication: PRODUCT USED FOR UNKNOWN INDICATION
     Dosage: 1 DOSAGE FORM EVERY 3 DAYS. DOSAGE FORM : UNSPECIFIED.
     Route: 062
  10. SEVELAMER [Concomitant]
     Indication: PRODUCT USED FOR UNKNOWN INDICATION
     Dosage: 800 MG, TID DOSAGE FORM: UNSPECIFIED
     Route: 065
  11. CYPROTERONE [Concomitant]
     Indication: PRODUCT USED FOR UNKNOWN INDICATION
     Dosage: 100 MG 1 EVERY 3 MONTHS, DOSAGE FORM: UNSPECIFIED
     Route: 050
  12. DEXAMETHASONE [Concomitant]
     Indication: PRODUCT USED FOR UNKNOWN INDICATION
     Dosage: DOSAGE FORM: UNSPECIFIED
     Route: 065
  13. METOCLOPRAMIDE [Concomitant]
     Indication: PRODUCT USED FOR UNKNOWN INDICATION
     Dosage: 10 MG, TID DOSAGE FORM: UNSPECIFIED
     Route: 065

REACTIONS (3)
  - Pneumonia [Fatal]
  - Prostate cancer metastatic [Fatal]
  - Renal failure chronic [Fatal]
